FAERS Safety Report 25888024 (Version 2)
Quarter: 2025Q4

REPORT INFORMATION
  Report Type: Spontaneous
  Country: CA (occurrence: CA)
  Receive Date: 20251007
  Receipt Date: 20251104
  Transmission Date: 20260117
  Serious: Yes (Other)
  Sender: CELLTRION
  Company Number: CA-CELLTRION INC.-2025CA021497

PATIENT

DRUGS (3)
  1. INFLIXIMAB [Suspect]
     Active Substance: INFLIXIMAB
     Indication: Crohn^s disease
     Dosage: MAINTENANCE AT 10 MG/KG EVERY 4 WEEKS
     Route: 042
     Dates: start: 20250627
  2. INFLIXIMAB [Suspect]
     Active Substance: INFLIXIMAB
     Dosage: MAINTENANCE AT 10 MG/KG EVERY 4 WEEKS
     Route: 042
     Dates: start: 20250627
  3. INFLIXIMAB [Suspect]
     Active Substance: INFLIXIMAB
     Dosage: MAINTENANCE - 10 MG/KG EVERY 4 WEEKS
     Route: 042
     Dates: start: 20250723

REACTIONS (9)
  - Ileal stenosis [Unknown]
  - Anal abscess [Unknown]
  - Harvey-Bradshaw index increased [Unknown]
  - Abscess [Unknown]
  - Product dose omission issue [Unknown]
  - Off label use [Unknown]
  - Inappropriate schedule of product administration [Unknown]
  - Therapy interrupted [Unknown]
  - Product availability issue [Unknown]

NARRATIVE: CASE EVENT DATE: 20250723
